FAERS Safety Report 14323445 (Version 1)
Quarter: 2017Q4

REPORT INFORMATION
  Report Type: Spontaneous
  Country: US (occurrence: US)
  Receive Date: 20171226
  Receipt Date: 20171226
  Transmission Date: 20180321
  Serious: No
  Sender: FDA-Public Use
  Company Number: US-ASTRAZENECA-2017SF07281

PATIENT
  Age: 58 Year
  Sex: Male
  Weight: 136.1 kg

DRUGS (1)
  1. BYDUREON [Suspect]
     Active Substance: EXENATIDE
     Indication: TYPE 2 DIABETES MELLITUS
     Route: 058
     Dates: start: 2017

REACTIONS (5)
  - Injection site pain [Unknown]
  - Extra dose administered [Unknown]
  - Wrong technique in device usage process [Unknown]
  - Product solubility abnormal [Unknown]
  - Underdose [Unknown]

NARRATIVE: CASE EVENT DATE: 2017
